FAERS Safety Report 25555767 (Version 1)
Quarter: 2025Q3

REPORT INFORMATION
  Report Type: Spontaneous
  Country: US (occurrence: US)
  Receive Date: 20250715
  Receipt Date: 20250715
  Transmission Date: 20251020
  Serious: No
  Sender: SOLENO THERAPEUTICS
  Company Number: US-SOLENO THERAPEUTICS, INC.-SOL2025000115

PATIENT
  Age: 29 Year
  Sex: Male
  Weight: 187 kg

DRUGS (2)
  1. VYKAT XR [Suspect]
     Active Substance: DIAZOXIDE CHOLINE
     Route: 048
  2. VYKAT XR [Suspect]
     Active Substance: DIAZOXIDE CHOLINE
     Route: 048

REACTIONS (1)
  - Oedema peripheral [Not Recovered/Not Resolved]
